FAERS Safety Report 5087944-5 (Version None)
Quarter: 2006Q3

REPORT INFORMATION
  Report Type: 
  Country: None (occurrence: None)
  Receive Date: 20060822
  Receipt Date: 20060822
  Transmission Date: 20061208
  Serious: Yes (Hospitalization)
  Sender: FDA-Public Use
  Company Number: None

PATIENT
  Age: 78 Year
  Sex: Male
  Weight: 84.369 kg

DRUGS (5)
  1. WARFARIN SODIUM [Suspect]
     Indication: ATRIAL FIBRILLATION
     Dosage: 1 TAB PO QPM
     Route: 048
  2. CYANOCOBALAMIN [Concomitant]
  3. FOSINOPRIL SODIUM [Concomitant]
  4. SIMVASTATIN [Concomitant]
  5. INDOMETHACIN [Concomitant]

REACTIONS (4)
  - GASTRITIS [None]
  - INTESTINAL ULCER [None]
  - POST PROCEDURAL HAEMORRHAGE [None]
  - REFUSAL OF TREATMENT BY PATIENT [None]
